FAERS Safety Report 11898149 (Version 2)
Quarter: 2016Q2

REPORT INFORMATION
  Report Type: Spontaneous
  Country: US (occurrence: US)
  Receive Date: 20160108
  Receipt Date: 20160629
  Transmission Date: 20160815
  Serious: No
  Sender: FDA-Public Use
  Company Number: US-VERTEX PHARMACEUTICALS-2016-000067

PATIENT
  Age: 13 Year
  Sex: Male
  Weight: 35 kg

DRUGS (22)
  1. IPRATROPIUM/ALBUTEROL [Concomitant]
     Active Substance: ALBUTEROL\IPRATROPIUM
     Indication: COUGH
     Dosage: 1 VIAL, QID, PRN BY NEBULIZER
     Route: 055
  2. SODIUM CHLORIDE. [Concomitant]
     Active Substance: SODIUM CHLORIDE
     Dosage: 1 VIAL  BY NEBULIZER, BID
     Route: 055
  3. PULMOZYME [Concomitant]
     Active Substance: DORNASE ALFA
     Dosage: 2.5 MG, NEBULIZED, QD
     Route: 055
  4. IPRATROPIUM/ALBUTEROL [Concomitant]
     Active Substance: ALBUTEROL\IPRATROPIUM
     Indication: DYSPNOEA
  5. MULTIVITAMIN [Concomitant]
     Active Substance: VITAMINS
     Dosage: 2 GELCAPS, QD WITH MEALS/ENZYMES TO IMPROVE ABSORPTION
  6. AQUADEKS [Concomitant]
     Active Substance: MINERALS\VITAMINS
     Dosage: 2 DF, QD
     Route: 048
  7. FLUTICASONE PROPIONATE. [Concomitant]
     Active Substance: FLUTICASONE PROPIONATE
     Dosage: 1 SPRAY EACH NOSTRIL, QD
     Route: 045
  8. SALINE [Concomitant]
     Active Substance: SODIUM CHLORIDE
     Indication: HYPERSENSITIVITY
     Dosage: NASAL IRIGATION, PRN
  9. ORKAMBI [Suspect]
     Active Substance: IVACAFTOR\LUMACAFTOR
     Indication: CYSTIC FIBROSIS
     Dosage: 400-250 MG, BID
     Route: 048
     Dates: start: 201509
  10. DUONEB [Concomitant]
     Active Substance: ALBUTEROL SULFATE\IPRATROPIUM BROMIDE
  11. PROAIR HFA [Concomitant]
     Active Substance: ALBUTEROL SULFATE
     Indication: WHEEZING
  12. BOOST [Concomitant]
     Active Substance: DIETARY SUPPLEMENT
     Dosage: 3 CANS PER DAY VIA GT
  13. BACTRIM DS [Concomitant]
     Active Substance: SULFAMETHOXAZOLE\TRIMETHOPRIM
     Indication: PULMONARY FUNCTION TEST DECREASED
     Dosage: 1 DF, BID
     Route: 048
  14. ZYRTEC [Concomitant]
     Active Substance: CETIRIZINE HYDROCHLORIDE
  15. PROAIR HFA [Concomitant]
     Active Substance: ALBUTEROL SULFATE
     Indication: COUGH
     Dosage: 2-4 PUFFS EVERY 4-6 HOURS PRN. USE WITH SPACER
  16. PREVACID [Concomitant]
     Active Substance: LANSOPRAZOLE
     Indication: GASTROOESOPHAGEAL REFLUX DISEASE
     Dosage: 1 DF, QD IN AM
     Route: 048
  17. PERTZYE [Concomitant]
     Active Substance: PANCRELIPASE AMYLASE\PANCRELIPASE LIPASE\PANCRELIPASE PROTEASE
     Dosage: 4-5 CPASULES BEFORE MEALS AND 2-3 CAPSULES BEFORE SNACKS
     Route: 048
  18. FLONASE [Concomitant]
     Active Substance: FLUTICASONE PROPIONATE
  19. ALLERGY RELIEF [Concomitant]
     Dosage: 1 DF, QD
     Route: 048
  20. TOBI [Concomitant]
     Active Substance: TOBRAMYCIN
     Dosage: INHALE 4 CAPS, BID, IN RECURRING CYCLES OF 28DAYS ON AND 28 DAYS OFF
     Route: 055
  21. HYPERTONIC SALINE SOLUTION [Concomitant]
     Active Substance: SODIUM CHLORIDE
  22. CAYSTON [Concomitant]
     Active Substance: AZTREONAM
     Dosage: INHALE 1 VIAL, TID, CYCLE WITH TOBI
     Route: 055

REACTIONS (1)
  - Cough [Recovered/Resolved]

NARRATIVE: CASE EVENT DATE: 201509
